FAERS Safety Report 7236541-1 (Version None)
Quarter: 2011Q1

REPORT INFORMATION
  Report Type: 
  Country: None (occurrence: None)
  Receive Date: 20110112
  Receipt Date: 20101227
  Transmission Date: 20110831
  Serious: Yes (Other)
  Sender: FDA-Public Use
  Company Number: 2010BI038085

PATIENT
  Age: 61 Year
  Sex: Male
  Weight: 63 kg

DRUGS (16)
  1. ZEVALIN [Suspect]
     Indication: FOLLICLE CENTRE LYMPHOMA, FOLLICULAR GRADE I, II, III
     Dosage: 850 MBQ; 1X; IV
     Route: 042
     Dates: start: 20091117, end: 20091125
  2. RITUXIMAB [Concomitant]
  3. FLUDARA [Concomitant]
  4. RITUXIMAB [Concomitant]
  5. POLARAMINE [Concomitant]
  6. PREDNISOLONE [Concomitant]
  7. ETOPOSIDE [Concomitant]
  8. AMARYL [Concomitant]
  9. SOLU-CORTEF [Concomitant]
  10. CYCLOPHOSPHAMIDE [Concomitant]
  11. DOXORUBICIN HCL [Concomitant]
  12. VINCRISTINE [Concomitant]
  13. INTERFERON [Concomitant]
  14. ZEVALIN [Suspect]
  15. MITOXANTRONE [Concomitant]
  16. DEXAMETHASONE [Concomitant]

REACTIONS (3)
  - PNEUMATOSIS [None]
  - PNEUMATOSIS INTESTINALIS [None]
  - NEUTROPHIL COUNT DECREASED [None]
